FAERS Safety Report 7641977-0 (Version None)
Quarter: 2011Q3

REPORT INFORMATION
  Report Type: 
  Country: None (occurrence: None)
  Receive Date: 20110728
  Receipt Date: 20110720
  Transmission Date: 20111222
  Serious: Yes (Other)
  Sender: FDA-Public Use
  Company Number: US-JNJFOC-20080403111

PATIENT
  Sex: Male
  Weight: 60 kg

DRUGS (8)
  1. ACETAMINOPHEN [Concomitant]
     Indication: PREMEDICATION
  2. STEROIDS [Concomitant]
  3. REMICADE [Suspect]
     Route: 042
     Dates: start: 20070726
  4. ASPIRIN [Concomitant]
     Route: 048
  5. ANTIHISTAMINE [Concomitant]
     Indication: PREMEDICATION
  6. REMICADE [Suspect]
     Indication: CROHN'S DISEASE
     Route: 042
     Dates: start: 20070523
  7. FOLIC ACID [Concomitant]
  8. METHOTREXATE [Concomitant]

REACTIONS (1)
  - EPSTEIN-BARR VIRUS INFECTION [None]
